FAERS Safety Report 7296624-7 (Version None)
Quarter: 2011Q1

REPORT INFORMATION
  Report Type: 
  Country: None (occurrence: None)
  Receive Date: 20110216
  Receipt Date: 20110210
  Transmission Date: 20110831
  Serious: Yes (Death, Other)
  Sender: FDA-Public Use
  Company Number: PHHY2011NZ00956

PATIENT
  Sex: Male

DRUGS (1)
  1. CLOZARIL [Suspect]
     Indication: SCHIZOPHRENIA
     Dosage: 500 MG NOCTE
     Route: 048
     Dates: start: 20020919

REACTIONS (3)
  - BRAIN NEOPLASM [None]
  - MYOCARDIAL INFARCTION [None]
  - LUNG NEOPLASM MALIGNANT [None]
